FAERS Safety Report 4912082-9 (Version None)
Quarter: 2006Q1

REPORT INFORMATION
  Report Type: 
  Country: None (occurrence: None)
  Receive Date: 20060215
  Receipt Date: 20060206
  Transmission Date: 20060701
  Serious: Yes (Hospitalization)
  Sender: FDA-Public Use
  Company Number: PHBS2006TR02007

PATIENT
  Age: 38 Year
  Sex: Male
  Weight: 72 kg

DRUGS (1)
  1. EXELON [Suspect]
     Dosage: 90 MG, ONCE/SINGLE
     Route: 048

REACTIONS (23)
  - BLOOD CHOLINESTERASE DECREASED [None]
  - BLOOD GLUCOSE INCREASED [None]
  - BRADYCARDIA [None]
  - COLD SWEAT [None]
  - DIZZINESS [None]
  - DRUG TOXICITY [None]
  - GASTRIC LAVAGE [None]
  - GASTROINTESTINAL TUBE INSERTION [None]
  - GLASGOW COMA SCALE ABNORMAL [None]
  - HYPERHIDROSIS [None]
  - HYPERTENSION [None]
  - INTENTIONAL OVERDOSE [None]
  - MALAISE [None]
  - NAUSEA [None]
  - OXYGEN SATURATION DECREASED [None]
  - PYREXIA [None]
  - RESPIRATORY DEPRESSION [None]
  - RESPIRATORY RATE DECREASED [None]
  - SALIVARY HYPERSECRETION [None]
  - SKIN WARM [None]
  - SOMNOLENCE [None]
  - SUICIDE ATTEMPT [None]
  - VOMITING [None]
